FAERS Safety Report 7569284-5 (Version None)
Quarter: 2011Q2

REPORT INFORMATION
  Report Type: 
  Country: None (occurrence: None)
  Receive Date: 20110623
  Receipt Date: 20110607
  Transmission Date: 20111010
  Serious: Yes (Death)
  Sender: FDA-Public Use
  Company Number: AU-ASTRAZENECA-1989AP53771

PATIENT
  Age: 29 Year
  Sex: Female
  Weight: 57 kg

DRUGS (1)
  1. DIPRIVAN [Suspect]
     Dosage: 2       AMPOULES
     Route: 042

REACTIONS (3)
  - COMPLETED SUICIDE [None]
  - OVERDOSE [None]
  - DRUG ABUSE [None]
